FAERS Safety Report 18711174 (Version 1)
Quarter: 2021Q1

REPORT INFORMATION
  Report Type: Spontaneous
  Country: JP (occurrence: JP)
  Receive Date: 20210107
  Receipt Date: 20210107
  Transmission Date: 20210419
  Serious: Yes (Other)
  Sender: FDA-Public Use
  Company Number: JP-BAYER-2021-015321

PATIENT
  Age: 50 Year
  Sex: Female

DRUGS (1)
  1. BETAFERON [Suspect]
     Active Substance: INTERFERON BETA-1B
     Indication: MULTIPLE SCLEROSIS
     Dosage: UNK UNK, QOD
     Route: 058
     Dates: start: 2007

REACTIONS (5)
  - Cellulitis [None]
  - Musculoskeletal stiffness [None]
  - Inflammatory marker increased [None]
  - Pain in extremity [None]
  - Injection site reaction [None]
